FAERS Safety Report 17404219 (Version 2)
Quarter: 2020Q1

REPORT INFORMATION
  Report Type: Spontaneous
  Country: PL (occurrence: PL)
  Receive Date: 20200211
  Receipt Date: 20200218
  Transmission Date: 20200409
  Serious: Yes (Other)
  Sender: FDA-Public Use
  Company Number: NVSC2020PL032314

PATIENT
  Age: 38 Year
  Sex: Male

DRUGS (1)
  1. OSPAMOX [Suspect]
     Active Substance: AMOXICILLIN
     Indication: NASOPHARYNGITIS
     Dosage: 1000 MG, BID
     Route: 048
     Dates: start: 20200117

REACTIONS (8)
  - Body temperature increased [Recovering/Resolving]
  - Chills [Recovering/Resolving]
  - Dementia [Recovering/Resolving]
  - Vertigo [Recovering/Resolving]
  - Dry mouth [Recovering/Resolving]
  - Hyperhidrosis [Recovering/Resolving]
  - Insomnia [Recovering/Resolving]
  - Nasopharyngitis [Recovering/Resolving]
